FAERS Safety Report 5139601-4 (Version None)
Quarter: 2006Q4

REPORT INFORMATION
  Report Type: 
  Country: None (occurrence: None)
  Receive Date: 20061030
  Receipt Date: 20061024
  Transmission Date: 20070319
  Serious: Yes (Hospitalization)
  Sender: FDA-Public Use
  Company Number: US-ABBOTT-06P-163-0347944-00

PATIENT
  Sex: Female

DRUGS (2)
  1. HUMIRA [Suspect]
     Indication: RHEUMATOID ARTHRITIS
     Route: 058
     Dates: start: 20030101, end: 20060911
  2. PRINZIDE [Concomitant]
     Indication: HYPERTENSION
     Dosage: 30/25
     Route: 048

REACTIONS (2)
  - HERPES ZOSTER [None]
  - KNEE ARTHROPLASTY [None]
